FAERS Safety Report 8376059-6 (Version None)
Quarter: 2012Q2

REPORT INFORMATION
  Report Type: 
  Country: None (occurrence: None)
  Receive Date: 20120522
  Receipt Date: 20120515
  Transmission Date: 20120825
  Serious: Yes (Other)
  Sender: FDA-Public Use
  Company Number: PHHY2012BR043010

PATIENT
  Sex: Male
  Weight: 63 kg

DRUGS (4)
  1. AKINETON [Concomitant]
     Indication: BIPOLAR DISORDER
  2. LITHIUM CARBONATE [Concomitant]
     Indication: BIPOLAR DISORDER
     Dosage: 3 TO 5 TABLETS A DAY
     Route: 048
  3. DEPAKOTE [Concomitant]
     Indication: BIPOLAR DISORDER
  4. TEGRETOL [Suspect]
     Indication: BIPOLAR DISORDER
     Dates: start: 19780101, end: 19920101

REACTIONS (3)
  - WEIGHT DECREASED [None]
  - HYPERTHYROIDISM [None]
  - DYSGRAPHIA [None]
